FAERS Safety Report 17710430 (Version 3)
Quarter: 2020Q2

REPORT INFORMATION
  Report Type: Spontaneous
  Country: IT (occurrence: IT)
  Receive Date: 20200427
  Receipt Date: 20200530
  Transmission Date: 20200714
  Serious: Yes (Death)
  Sender: FDA-Public Use
  Company Number: IT-TEVA-2020-IT-1226892

PATIENT
  Age: 70 Year
  Sex: Male

DRUGS (2)
  1. AZITROMICINA TEVA 500 MG COMPRESSE RIVESTITE CON FILM [Suspect]
     Active Substance: AZITHROMYCIN HEMIETHANOLATE MONOHYDRATE
     Indication: CORONAVIRUS INFECTION
     Dosage: 500 MG
     Route: 048
     Dates: start: 20200326, end: 20200328
  2. PLAQUENIL [Interacting]
     Active Substance: HYDROXYCHLOROQUINE SULFATE
     Indication: CORONAVIRUS INFECTION
     Dosage: 400 MG
     Route: 048
     Dates: start: 20200326

REACTIONS (2)
  - Transaminases increased [Fatal]
  - Drug interaction [Fatal]

NARRATIVE: CASE EVENT DATE: 20200330
